FAERS Safety Report 4498434-2 (Version None)
Quarter: 2004Q4

REPORT INFORMATION
  Report Type: 
  Country: None (occurrence: None)
  Receive Date: 20041105
  Receipt Date: 20041028
  Transmission Date: 20050328
  Serious: No
  Sender: FDA-Public Use
  Company Number: J081-002-001786

PATIENT
  Age: 71 Year
  Sex: Female
  Weight: 39.5 kg

DRUGS (16)
  1. ARICEPT [Suspect]
     Indication: DEMENTIA ALZHEIMER'S TYPE
     Dosage: 3 MG, 1 IN 1 D, ORAL
     Route: 048
     Dates: start: 20040906, end: 20040912
  2. WARFARIN (WARFARIN POTASSIUM) [Concomitant]
  3. FASTIC (NATEGLINIDE) [Concomitant]
  4. PREDNISOLONE [Concomitant]
  5. FLUTIDE (FLUTICASONE PROPIONATE) [Concomitant]
  6. UNIPHYL [Concomitant]
  7. NORVASC [Concomitant]
  8. PERSANTIN-L (DIPYRIDAMOLE) [Concomitant]
  9. PARAMIDIN (BUCOLOME) [Concomitant]
  10. ANZIEF (ALLOPURINOL) [Concomitant]
  11. LANSOPRAZOLE [Concomitant]
  12. ALFAROL (ALFACALCIDOL) [Concomitant]
  13. CALCIUM LACTATE (CALCIUM LACTATE) [Concomitant]
  14. MUCOSTA (REBAMIPIDE) [Concomitant]
  15. LASIX [Concomitant]
  16. ALDACTONE [Concomitant]

REACTIONS (2)
  - LEUKOPENIA [None]
  - NEUTROPENIA [None]
